FAERS Safety Report 19146271 (Version 1)
Quarter: 2021Q2

REPORT INFORMATION
  Report Type: Report from Study
  Country: US (occurrence: US)
  Receive Date: 20210416
  Receipt Date: 20210416
  Transmission Date: 20210717
  Serious: Yes (Hospitalization)
  Sender: FDA-Public Use
  Company Number: US-ADAMAS PHARMA, LLC-2021ADA00753

PATIENT
  Age: 75 Year
  Sex: Female

DRUGS (14)
  1. TROSPIUM ER [Concomitant]
     Active Substance: TROSPIUM CHLORIDE
  2. UNSPECIFIED STOOL SOFTENERS [Concomitant]
  3. DEEP BRAIN STIMULATION [Concomitant]
  4. RAPAFLO [Concomitant]
     Active Substance: SILODOSIN
  5. ROPINIROLE. [Concomitant]
     Active Substance: ROPINIROLE
     Dosage: 6 MG
  6. GOCOVRI [Suspect]
     Active Substance: AMANTADINE
     Indication: DYSKINESIA
     Dosage: 137 MG, 1X/DAY, AT BEDTIME
     Route: 048
     Dates: start: 20190312, end: 202103
  7. CARBIDOPA/LEVODOPA [Concomitant]
     Active Substance: CARBIDOPA\LEVODOPA
     Dosage: 100 MG, 4X/DAY
     Dates: start: 2021
  8. MELATONIN [Concomitant]
     Active Substance: MELATONIN
  9. AZILECT [Concomitant]
     Active Substance: RASAGILINE MESYLATE
  10. ENTACAPONE. [Concomitant]
     Active Substance: ENTACAPONE
     Dosage: UNK
     Dates: end: 2021
  11. CITALOPRAM [Concomitant]
     Active Substance: CITALOPRAM HYDROBROMIDE
  12. PANTOPRAZOLE [Concomitant]
     Active Substance: PANTOPRAZOLE
  13. CARBIDOPA/LEVODOPA [Concomitant]
     Active Substance: CARBIDOPA\LEVODOPA
     Dosage: ^100 MG + 20 MG^, 4X/DAY
     Dates: end: 2021
  14. CENTRUM [Concomitant]
     Active Substance: VITAMINS

REACTIONS (5)
  - Vitamin B12 decreased [Unknown]
  - Hallucination, visual [Recovering/Resolving]
  - Insomnia [Not Recovered/Not Resolved]
  - Delirium [Recovered/Resolved]
  - COVID-19 [Recovered/Resolved]

NARRATIVE: CASE EVENT DATE: 20210206
